FAERS Safety Report 7789122-5 (Version None)
Quarter: 2011Q3

REPORT INFORMATION
  Report Type: 
  Country: None (occurrence: None)
  Receive Date: 20110930
  Receipt Date: 20110920
  Transmission Date: 20111222
  Serious: Yes (Hospitalization, Other)
  Sender: FDA-Public Use
  Company Number: US-BAYER-2011-091245

PATIENT
  Age: 20 Year
  Sex: Female
  Weight: 53.061 kg

DRUGS (3)
  1. YAZ [Suspect]
     Indication: ORAL CONTRACEPTION
     Dosage: UNK
     Dates: start: 20080201, end: 20090901
  2. SPRINTEC [Concomitant]
     Dosage: UNK UNK, QD
     Route: 048
     Dates: start: 20090929, end: 20100508
  3. YAZ [Suspect]
     Indication: ACNE

REACTIONS (5)
  - VOMITING [None]
  - GALLBLADDER POLYP [None]
  - ABDOMINAL PAIN LOWER [None]
  - CHOLECYSTITIS CHRONIC [None]
  - NAUSEA [None]
